FAERS Safety Report 9523741 (Version 2)
Quarter: 2013Q4

REPORT INFORMATION
  Report Type: Report from Study
  Country: DE (occurrence: DE)
  Receive Date: 20130914
  Receipt Date: 20131025
  Transmission Date: 20140711
  Serious: Yes (Hospitalization)
  Sender: FDA-Public Use
  Company Number: DE-BRISTOL-MYERS SQUIBB COMPANY-19364355

PATIENT
  Age: 58 Year
  Sex: Female

DRUGS (3)
  1. CARBOPLATIN [Suspect]
     Indication: OVARIAN CANCER
     Route: 042
     Dates: start: 20120430, end: 20130902
  2. TAXOL [Suspect]
     Indication: OVARIAN CANCER
     Dosage: LT D :22/AU/12 237 MG,ON DAY 1FOR6 CYCLES, LT D TO 5TH EPISODE OF  EVENT GENERAL BAD  (249MG,L/3 WK)
     Route: 042
     Dates: start: 20120430, end: 20130902
  3. BEVACIZUMAB [Suspect]
     Indication: OVARIAN CANCER
     Dosage: INFUSION SOLN
     Route: 042
     Dates: start: 20120522, end: 20130902

REACTIONS (3)
  - General physical health deterioration [Recovered/Resolved]
  - Device related infection [Recovered/Resolved]
  - Ascites [Unknown]
